FAERS Safety Report 20808131 (Version 1)
Quarter: 2022Q2

REPORT INFORMATION
  Report Type: Report from Study
  Country: IT (occurrence: IT)
  Receive Date: 20220510
  Receipt Date: 20220510
  Transmission Date: 20220721
  Serious: Yes (Other)
  Sender: FDA-Public Use
  Company Number: IT-UCBSA-2022018343

PATIENT
  Sex: Male

DRUGS (6)
  1. LACOSAMIDE [Suspect]
     Active Substance: LACOSAMIDE
     Indication: Product used for unknown indication
     Dosage: 200 MILLIGRAM, 2X/DAY (BID)
  2. LACOSAMIDE [Suspect]
     Active Substance: LACOSAMIDE
     Dosage: 200MG 1TABLET IN THE MORNING AND 2TABLETS IN THE EVENING
     Dates: start: 20220317
  3. LEVETIRACETAM [Concomitant]
     Active Substance: LEVETIRACETAM
     Dosage: 3500 MILLIGRAM, UNK
  4. FYCOMPA [Concomitant]
     Active Substance: PERAMPANEL
     Dosage: 10 MILLIGRAM, ONCE DAILY (QD)
  5. TICHE [Concomitant]
     Dosage: 165 MILLIGRAM, ONCE DAILY (QD)
  6. LEVOTHYROXINE SODIUM [Concomitant]
     Active Substance: LEVOTHYROXINE SODIUM
     Dosage: 200 MILLIGRAM, UNK

REACTIONS (6)
  - Seizure [Unknown]
  - Vagal nerve stimulator implantation [Unknown]
  - Aspartate aminotransferase increased [Unknown]
  - Blood follicle stimulating hormone abnormal [Unknown]
  - Off label use [Unknown]
  - Overdose [Unknown]

NARRATIVE: CASE EVENT DATE: 20220317
